FAERS Safety Report 14515710 (Version 1)
Quarter: 2018Q1

REPORT INFORMATION
  Report Type: Report from Study
  Country: IT (occurrence: IT)
  Receive Date: 20180211
  Receipt Date: 20180211
  Transmission Date: 20180509
  Serious: Yes (Hospitalization)
  Sender: FDA-Public Use
  Company Number: IT-CONCORDIA PHARMACEUTICALS INC.-E2B_00009811

PATIENT
  Age: 78 Year
  Sex: Female

DRUGS (12)
  1. LANOXIN [Suspect]
     Active Substance: DIGOXIN
     Indication: CARDIAC FAILURE
     Route: 048
  2. LOPRESOR 100 MG COMPRESSE RIVESTITE CON FILM [Suspect]
     Active Substance: METOPROLOL TARTRATE
     Indication: HYPERTENSION
     Route: 048
  3. LASIX [Concomitant]
     Active Substance: FUROSEMIDE
  4. OLPRESS 20 MG COMPRESSE RIVESTITE CON FILM [Concomitant]
  5. SIMVASTATIN. [Concomitant]
     Active Substance: SIMVASTATIN
  6. ADALAT CRONO 30 MG COMPRESSE A RILASCIO MODIFICATO [Concomitant]
  7. RIVOTRIL 0,5 MG COMPRESSE [Concomitant]
  8. LUVION 50 MG COMPRESSE [Concomitant]
  9. LYRICA [Concomitant]
     Active Substance: PREGABALIN
  10. RANIDIL 300 MG COMPRESSE RIVESTITE CON FILM [Concomitant]
  11. COUMADIN [Concomitant]
     Active Substance: WARFARIN SODIUM
  12. DIBASE 10.000 U.I./ML GOCCE ORALI, SOLUZIONE [Concomitant]

REACTIONS (2)
  - Nodal arrhythmia [Recovered/Resolved]
  - Troponin increased [Recovered/Resolved]

NARRATIVE: CASE EVENT DATE: 20171101
